FAERS Safety Report 8911603 (Version 1)
Quarter: 2012Q4

REPORT INFORMATION
  Report Type: 
  Country: GB (occurrence: GB)
  Receive Date: 20121116
  Receipt Date: 20121116
  Transmission Date: 20130627
  Serious: Yes (Other)
  Sender: FDA-Public Use
  Company Number: GB-PFIZER INC-2012222687

PATIENT
  Age: 53 Year
  Sex: Male
  Weight: 93 kg

DRUGS (4)
  1. SERTRALINE [Suspect]
     Indication: STRESS
     Dosage: 50 + 100mg (as reported)
     Dates: start: 201111
  2. SERTRALINE [Suspect]
     Indication: DEPRESSION
     Dosage: 150 mg, 1x/day
     Dates: end: 201210
  3. VENTOLIN [Concomitant]
     Indication: ASTHMA
     Dosage: UNK
     Dates: start: 201001
  4. CLENIL [Concomitant]
     Indication: ASTHMA
     Dosage: 100 (as reported) 2x/daily
     Dates: start: 201001

REACTIONS (4)
  - Tooth discolouration [Not Recovered/Not Resolved]
  - Device failure [Not Recovered/Not Resolved]
  - Tooth fracture [Not Recovered/Not Resolved]
  - Sensitivity of teeth [Not Recovered/Not Resolved]
